FAERS Safety Report 24104747 (Version 16)
Quarter: 2025Q2

REPORT INFORMATION
  Report Type: Spontaneous
  Country: CA (occurrence: CA)
  Receive Date: 20240717
  Receipt Date: 20250517
  Transmission Date: 20250717
  Serious: Yes (Hospitalization, Other)
  Sender: CELLTRION
  Company Number: CA-PFIZER INC-202400135791

PATIENT

DRUGS (19)
  1. INFLECTRA [Suspect]
     Active Substance: INFLIXIMAB-DYYB
     Indication: Crohn^s disease
     Route: 042
     Dates: start: 20231207
  2. INFLECTRA [Suspect]
     Active Substance: INFLIXIMAB-DYYB
     Route: 042
     Dates: start: 20240509
  3. INFLECTRA [Suspect]
     Active Substance: INFLIXIMAB-DYYB
     Route: 042
     Dates: start: 20240509
  4. INFLECTRA [Suspect]
     Active Substance: INFLIXIMAB-DYYB
     Route: 042
     Dates: start: 20240705
  5. INFLECTRA [Suspect]
     Active Substance: INFLIXIMAB-DYYB
     Route: 042
     Dates: start: 20241219
  6. INFLECTRA [Suspect]
     Active Substance: INFLIXIMAB-DYYB
     Route: 042
     Dates: start: 20250212
  7. INFLECTRA [Suspect]
     Active Substance: INFLIXIMAB-DYYB
     Route: 042
     Dates: start: 20250430
  8. ASPIRIN [Concomitant]
     Active Substance: ASPIRIN
     Route: 048
     Dates: start: 202311
  9. ALFUZOSIN [Concomitant]
     Active Substance: ALFUZOSIN
  10. ALLOPURINOL [Concomitant]
     Active Substance: ALLOPURINOL
  11. VITAMIN B12 [Concomitant]
     Active Substance: CYANOCOBALAMIN
  12. CANDESARTAN [Concomitant]
     Active Substance: CANDESARTAN
  13. COLCHICINE [Concomitant]
     Active Substance: COLCHICINE
  14. CITALOPRAM [Concomitant]
     Active Substance: CITALOPRAM
  15. PANTOPRAZOLE [Concomitant]
     Active Substance: PANTOPRAZOLE
     Route: 048
     Dates: start: 202311
  16. PREDNISONE [Concomitant]
     Active Substance: PREDNISONE
  17. SUCRALFATE [Concomitant]
     Active Substance: SUCRALFATE
     Dates: start: 202311
  18. FERROUS SULFATE [Concomitant]
     Active Substance: FERROUS SULFATE
  19. ZOPICLONE [Concomitant]
     Active Substance: ZOPICLONE

REACTIONS (15)
  - Intestinal obstruction [Recovering/Resolving]
  - Intestinal perforation [Recovering/Resolving]
  - Bacterial infection [Unknown]
  - Condition aggravated [Recovering/Resolving]
  - Vomiting [Recovering/Resolving]
  - Hypotension [Recovered/Resolved]
  - Asthenia [Unknown]
  - Abdominal distension [Not Recovered/Not Resolved]
  - Flatulence [Not Recovered/Not Resolved]
  - Gastroenteritis viral [Not Recovered/Not Resolved]
  - Weight decreased [Unknown]
  - Nausea [Unknown]
  - Arthralgia [Not Recovered/Not Resolved]
  - Aphthous ulcer [Recovered/Resolved]
  - Dehydration [Recovered/Resolved]

NARRATIVE: CASE EVENT DATE: 20240101
